FAERS Safety Report 6658159-1 (Version None)
Quarter: 2010Q1

REPORT INFORMATION
  Report Type: 
  Country: None (occurrence: None)
  Receive Date: 20100330
  Receipt Date: 20100324
  Transmission Date: 20100710
  Serious: Yes (Other)
  Sender: FDA-Public Use
  Company Number: B0627304A

PATIENT
  Sex: Male

DRUGS (5)
  1. SERETIDE [Suspect]
     Indication: ASTHMA
     Dosage: 250MCG TWICE PER DAY
     Route: 055
  2. SEREVENT [Suspect]
     Indication: ASTHMA
  3. FLIXOTIDE [Concomitant]
  4. VENTOLIN [Concomitant]
  5. PIRITON [Concomitant]

REACTIONS (2)
  - ASTHMA [None]
  - CHEST DISCOMFORT [None]
